FAERS Safety Report 15115184 (Version 1)
Quarter: 2018Q3

REPORT INFORMATION
  Report Type: Spontaneous
  Country: US (occurrence: US)
  Receive Date: 20180706
  Receipt Date: 20180706
  Transmission Date: 20181010
  Serious: No
  Sender: FDA-Public Use
  Company Number: US-ALLERGAN-1816230US

PATIENT
  Age: 15 Year
  Sex: Female
  Weight: 38.55 kg

DRUGS (2)
  1. VRAYLAR [Suspect]
     Active Substance: CARIPRAZINE
     Indication: BIPOLAR DISORDER
     Dosage: 4.5 MG, QD
     Route: 048
     Dates: start: 201803
  2. VRAYLAR [Suspect]
     Active Substance: CARIPRAZINE
     Dosage: UNK
     Route: 048
     Dates: start: 20180302

REACTIONS (9)
  - Headache [Not Recovered/Not Resolved]
  - Trismus [Recovering/Resolving]
  - Feeling cold [Recovering/Resolving]
  - Musculoskeletal stiffness [Recovering/Resolving]
  - Mydriasis [Recovering/Resolving]
  - Off label use [Unknown]
  - Tongue movement disturbance [Recovering/Resolving]
  - Tremor [Recovering/Resolving]
  - Dysphagia [Not Recovered/Not Resolved]

NARRATIVE: CASE EVENT DATE: 201803
